FAERS Safety Report 9174877 (Version 2)
Quarter: 2013Q2

REPORT INFORMATION
  Report Type: Spontaneous
  Country: CN (occurrence: CN)
  Receive Date: 20130320
  Receipt Date: 20130422
  Transmission Date: 20140414
  Serious: Yes (Other)
  Sender: FDA-Public Use
  Company Number: CN-GILEAD-2013-0072059

PATIENT
  Age: 38 Year
  Sex: Male

DRUGS (3)
  1. HEPSERA [Suspect]
     Indication: HEPATITIS B
     Dosage: 10MG PER DAY
     Route: 048
     Dates: start: 201203
  2. HEPTODIN [Suspect]
     Indication: HEPATITIS B
     Dosage: 100MG PER DAY
     Route: 048
     Dates: start: 201203
  3. UNKNOWN DRUG [Concomitant]
     Indication: HEPATITIS B
     Route: 065

REACTIONS (3)
  - Product quality issue [Unknown]
  - Alanine aminotransferase increased [Recovering/Resolving]
  - Drug ineffective [Unknown]
